FAERS Safety Report 5467113-7 (Version None)
Quarter: 2007Q3

REPORT INFORMATION
  Report Type: 
  Country: None (occurrence: None)
  Receive Date: 20070921
  Receipt Date: 20070921
  Transmission Date: 20080115
  Serious: Yes (Other)
  Sender: FDA-Public Use
  Company Number: None

PATIENT
  Age: 32 Year
  Sex: Female

DRUGS (2)
  1. COUMADIN [Suspect]
     Indication: MITRAL VALVE REPLACEMENT
     Dosage: 7.5 MG DAILY PO
     Route: 048
     Dates: start: 19980101, end: 20070917
  2. CRANBERRY JUICE [Suspect]
     Dosage: 3 TO 4 GLASSES DAILY PO
     Route: 048
     Dates: start: 20070817, end: 20070917

REACTIONS (1)
  - INTERNATIONAL NORMALISED RATIO INCREASED [None]
